FAERS Safety Report 24189731 (Version 2)
Quarter: 2024Q4

REPORT INFORMATION
  Report Type: Spontaneous
  Country: ZA (occurrence: ZA)
  Receive Date: 20240808
  Receipt Date: 20241028
  Transmission Date: 20250115
  Serious: Yes (Other)
  Sender: VIFOR (INTERNATIONAL) INC.
  Company Number: ZA-ROCHE-10000038074

PATIENT
  Age: 50 Year
  Sex: Male

DRUGS (1)
  1. MIRCERA [Suspect]
     Active Substance: METHOXY POLYETHYLENE GLYCOL-EPOETIN BETA
     Indication: Product used for unknown indication
     Route: 065

REACTIONS (2)
  - Haemoglobin increased [Not Recovered/Not Resolved]
  - Congenital cystic kidney disease [Unknown]
